FAERS Safety Report 4297540-5 (Version None)
Quarter: 2004Q1

REPORT INFORMATION
  Report Type: 
  Country: None (occurrence: None)
  Receive Date: 20040126
  Receipt Date: 20031031
  Transmission Date: 20041129
  Serious: No
  Sender: FDA-Public Use
  Company Number: USA031151392

PATIENT
  Age: 11 Year
  Sex: Male
  Weight: 48 kg

DRUGS (2)
  1. STRATTERA [Suspect]
     Dosage: 25 MG/IN THE MORNING
  2. ZYRTEC [Concomitant]

REACTIONS (1)
  - DRUG EFFECT DECREASED [None]
